FAERS Safety Report 24359095 (Version 1)
Quarter: 2024Q3

REPORT INFORMATION
  Report Type: Report from Study
  Country: CN (occurrence: CN)
  Receive Date: 20240924
  Receipt Date: 20240924
  Transmission Date: 20241017
  Serious: No
  Sender: Unknown Manufacturer
  Company Number: CN-ROCHE-3549431

PATIENT

DRUGS (2)
  1. PRALSETINIB [Suspect]
     Active Substance: PRALSETINIB
     Indication: Lung neoplasm malignant
     Dosage: 400 MILLIGRAM, QD
     Route: 048
  2. PRALSETINIB [Suspect]
     Active Substance: PRALSETINIB
     Dosage: 100 MILLIGRAM, UNK
     Route: 048

REACTIONS (1)
  - Adverse reaction [Unknown]
